FAERS Safety Report 8065674-5 (Version None)
Quarter: 2012Q1

REPORT INFORMATION
  Report Type: 
  Country: None (occurrence: None)
  Receive Date: 20120124
  Receipt Date: 20120116
  Transmission Date: 20120608
  Serious: Yes (Hospitalization)
  Sender: FDA-Public Use
  Company Number: US-BAYER-2011-040520

PATIENT
  Age: 36 Year
  Sex: Female
  Weight: 74.83 kg

DRUGS (3)
  1. YAZ [Suspect]
     Indication: PRODUCT USED FOR UNKNOWN INDICATION
     Dosage: UNK
     Route: 048
     Dates: start: 20070401, end: 20090801
  2. ALBUTEROL [Concomitant]
     Indication: ASTHMA
     Dosage: UNK
     Route: 045
     Dates: start: 20040101
  3. ADVAIR DISKUS 100/50 [Concomitant]
     Indication: ASTHMA
     Dosage: UNK
     Route: 045
     Dates: start: 20040101

REACTIONS (9)
  - MENTAL DISORDER [None]
  - MYOCARDIAL INFARCTION [None]
  - CEREBROVASCULAR ACCIDENT [None]
  - ANHEDONIA [None]
  - PULMONARY EMBOLISM [None]
  - GALLBLADDER DISORDER [None]
  - ANXIETY [None]
  - DEEP VEIN THROMBOSIS [None]
  - PAIN [None]
